FAERS Safety Report 10677879 (Version 1)
Quarter: 2014Q4

REPORT INFORMATION
  Report Type: Spontaneous
  Country: BR (occurrence: BR)
  Receive Date: 20141229
  Receipt Date: 20141229
  Transmission Date: 20150529
  Serious: Yes (Other)
  Sender: FDA-Public Use
  Company Number: BR-AMGEN-BRASP2014100458

PATIENT
  Age: 44 Year
  Sex: Female
  Weight: 59 kg

DRUGS (3)
  1. RIVOTRIL [Concomitant]
     Active Substance: CLONAZEPAM
     Dosage: 1 TABLET (3 MG), 2X/DAY
     Dates: start: 201409
  2. ENBREL [Suspect]
     Active Substance: ETANERCEPT
     Indication: PSORIATIC ARTHROPATHY
     Dosage: 50 MG, 1X/WEEK
     Route: 058
     Dates: start: 201306
  3. ARAVA [Concomitant]
     Active Substance: LEFLUNOMIDE
     Dosage: 1 TABLET (20 MG), 1X/DAY

REACTIONS (9)
  - Fear [Unknown]
  - Fatigue [Unknown]
  - Viral infection [Unknown]
  - Dyspnoea [Unknown]
  - Sinusitis [Unknown]
  - Irritability [Unknown]
  - Malaise [Unknown]
  - Pneumonia [Unknown]
  - Depressed mood [Unknown]

NARRATIVE: CASE EVENT DATE: 201402
